FAERS Safety Report 9850453 (Version 1)
Quarter: 2013Q4

REPORT INFORMATION
  Report Type: Spontaneous
  Country: US (occurrence: None)
  Receive Date: 20131226
  Receipt Date: 20131226
  Transmission Date: 20140711
  Serious: Yes (Other)
  Sender: FDA-Public Use
  Company Number: PHEH2012US008861

PATIENT
  Age: 53 Year
  Sex: Female
  Weight: 60 kg

DRUGS (5)
  1. AFINITOR (RAD) [Suspect]
     Dates: start: 20120303
  2. EXEMESTANE (EXEMESTANE) [Concomitant]
  3. WARFARIN (WARFARIN) [Concomitant]
  4. VITAMIN D3 (COLECALCIFEROL) [Concomitant]
  5. VITAMIN B6 (PYRIDOXINE HYDROCHLORIDE) [Concomitant]

REACTIONS (4)
  - Diarrhoea [None]
  - Stomatitis [None]
  - Pneumonia [None]
  - Fatigue [None]
